FAERS Safety Report 7814412-7 (Version None)
Quarter: 2011Q4

REPORT INFORMATION
  Report Type: 
  Country: None (occurrence: None)
  Receive Date: 20111014
  Receipt Date: 20111005
  Transmission Date: 20120403
  Serious: No
  Sender: FDA-Public Use
  Company Number: PHHY2011JP90042

PATIENT
  Sex: Female

DRUGS (2)
  1. NILOTINIB [Suspect]
     Indication: CHRONIC MYELOID LEUKAEMIA
     Dosage: UNK UKN, UNK
     Route: 048
  2. CYCLOSPORINE [Interacting]
     Indication: DERMATOMYOSITIS
     Dosage: UNK UKN, UNK
     Route: 048

REACTIONS (1)
  - DRUG INTERACTION [None]
